FAERS Safety Report 8220490-6 (Version None)
Quarter: 2012Q1

REPORT INFORMATION
  Report Type: 
  Country: None (occurrence: None)
  Receive Date: 20120320
  Receipt Date: 20120309
  Transmission Date: 20120608
  Serious: Yes (Other)
  Sender: FDA-Public Use
  Company Number: US-BAYER-2012-025409

PATIENT
  Sex: Female

DRUGS (1)
  1. YAZ [Suspect]
     Dosage: UNK

REACTIONS (15)
  - MALAISE [None]
  - CHEST PAIN [None]
  - DECREASED APPETITE [None]
  - CHILLS [None]
  - PALPITATIONS [None]
  - DIZZINESS [None]
  - DARK CIRCLES UNDER EYES [None]
  - FEELING ABNORMAL [None]
  - HOT FLUSH [None]
  - HEADACHE [None]
  - FATIGUE [None]
  - NAUSEA [None]
  - WEIGHT DECREASED [None]
  - HYPERSOMNIA [None]
  - ABDOMINAL PAIN [None]
